FAERS Safety Report 5238257-X (Version None)
Quarter: 2007Q1

REPORT INFORMATION
  Report Type: 
  Country: None (occurrence: None)
  Receive Date: 20070209
  Receipt Date: 20070201
  Transmission Date: 20070707
  Serious: Yes (Death)
  Sender: FDA-Public Use
  Company Number: 2007-00602

PATIENT
  Age: 81 Year

DRUGS (3)
  1. VERAPAMIL (WATSON LABORATORIES)(VERAPAMIL HYDROCHLORIDE) TABLET [Suspect]
  2. DIGOXIN [Suspect]
  3. CLOPIDOGREL [Suspect]

REACTIONS (1)
  - DEATH [None]
